FAERS Safety Report 22264294 (Version 2)
Quarter: 2023Q2

REPORT INFORMATION
  Report Type: Spontaneous
  Country: JP (occurrence: JP)
  Receive Date: 20230428
  Receipt Date: 20230523
  Transmission Date: 20230721
  Serious: Yes (Hospitalization, Other)
  Sender: FDA-Public Use
  Company Number: JP-COSETTE-CP2023JP000076

PATIENT
  Age: 80 Year
  Sex: Male
  Weight: 59.6 kg

DRUGS (13)
  1. EFFIENT [Suspect]
     Active Substance: PRASUGREL HYDROCHLORIDE
     Indication: Thrombotic cerebral infarction
     Route: 048
     Dates: start: 20221008
  2. ASPIRIN [Suspect]
     Active Substance: ASPIRIN
     Indication: Thrombotic cerebral infarction
     Route: 048
     Dates: start: 20220915
  3. CILOSTAZOL [Suspect]
     Active Substance: CILOSTAZOL
     Indication: Carotid artery stenosis
     Route: 048
     Dates: start: 20221008, end: 20221012
  4. ARGATROBAN [Suspect]
     Active Substance: ARGATROBAN
     Indication: Thrombotic cerebral infarction
     Route: 042
     Dates: start: 20221007, end: 20221008
  5. ARGATROBAN [Suspect]
     Active Substance: ARGATROBAN
     Route: 042
     Dates: start: 20221009, end: 20221011
  6. HEPARIN [Concomitant]
     Active Substance: HEPARIN SODIUM
     Indication: Product used for unknown indication
     Route: 042
     Dates: start: 20221012
  7. EZETIMIBE OD [Concomitant]
     Indication: Product used for unknown indication
     Route: 065
     Dates: start: 20220916
  8. BROTIZOLAM [Concomitant]
     Active Substance: BROTIZOLAM
     Indication: Insomnia
     Route: 065
     Dates: start: 20220926
  9. VONOPRAZAN FUMARATE [Concomitant]
     Active Substance: VONOPRAZAN FUMARATE
     Indication: Gastrooesophageal reflux disease
     Route: 065
     Dates: start: 20220915
  10. ZILMLO OD [Concomitant]
     Indication: Hypertension
     Route: 065
     Dates: start: 20220919
  11. SPIRONOLACTONE [Concomitant]
     Active Substance: SPIRONOLACTONE
     Indication: Hypertension
     Route: 065
     Dates: start: 20220928
  12. EDARAVONE [Concomitant]
     Active Substance: EDARAVONE
     Indication: Thrombotic cerebral infarction
     Route: 065
     Dates: start: 20221007, end: 20221013
  13. XYLOCAINE [Concomitant]
     Active Substance: LIDOCAINE HYDROCHLORIDE
     Indication: Local anaesthesia
     Route: 065
     Dates: start: 20221012, end: 20221012

REACTIONS (2)
  - Cerebral hyperperfusion syndrome [Unknown]
  - Subarachnoid haemorrhage [Recovered/Resolved]

NARRATIVE: CASE EVENT DATE: 20221012
